FAERS Safety Report 9414749 (Version 1)
Quarter: 2013Q3

REPORT INFORMATION
  Report Type: Report from Study
  Country: BR (occurrence: BR)
  Receive Date: 20130723
  Receipt Date: 20130723
  Transmission Date: 20140515
  Serious: Yes (Other)
  Sender: FDA-Public Use
  Company Number: PHHO2007BR19968

PATIENT
  Age: 64 Year
  Sex: Male

DRUGS (6)
  1. NEORAL [Suspect]
     Indication: RENAL TRANSPLANT
     Dosage: 200 MG, QD
     Route: 048
     Dates: start: 20071017
  2. NEORAL [Suspect]
     Dosage: 200 MG, DAILY
     Route: 048
     Dates: start: 20080804
  3. NEORAL [Suspect]
     Dosage: 150 MG, QD
     Route: 048
     Dates: start: 20081202
  4. CELLCEPT [Suspect]
     Indication: RENAL TRANSPLANT
     Dosage: 1000 MG, UNK
     Dates: start: 20070731
  5. PREDNISONE [Suspect]
     Indication: RENAL TRANSPLANT
     Dosage: 5 MG, UNK
     Dates: start: 20071002
  6. PREDNISONE [Suspect]
     Dosage: 5 MG, UNK
     Dates: start: 20071227

REACTIONS (3)
  - Basal cell carcinoma [Recovered/Resolved]
  - Actinic keratosis [Recovered/Resolved]
  - Squamous cell carcinoma of skin [Recovered/Resolved]
